FAERS Safety Report 5093360-2 (Version None)
Quarter: 2006Q3

REPORT INFORMATION
  Report Type: 
  Country: None (occurrence: None)
  Receive Date: 20060828
  Receipt Date: 20060811
  Transmission Date: 20061208
  Serious: Yes (Other)
  Sender: FDA-Public Use
  Company Number: 2006101793

PATIENT
  Age: 33 Year
  Sex: Female

DRUGS (2)
  1. FLUCONAZOLE [Suspect]
     Indication: INFECTION
  2. CONTRACEPTIVE, (CONTRACEPTIVE,) [Concomitant]

REACTIONS (4)
  - ANXIETY [None]
  - FATIGUE [None]
  - IMPAIRED WORK ABILITY [None]
  - STRESS [None]
